FAERS Safety Report 19405018 (Version 1)
Quarter: 2021Q2

REPORT INFORMATION
  Report Type: Spontaneous
  Country: JP (occurrence: JP)
  Receive Date: 20210611
  Receipt Date: 20210611
  Transmission Date: 20210717
  Serious: Yes (Hospitalization, Other)
  Sender: FDA-Public Use
  Company Number: JP-ELI_LILLY_AND_COMPANY-JP202009002177

PATIENT
  Age: 65 Year
  Sex: Female

DRUGS (2)
  1. ABRAXANE [Suspect]
     Active Substance: PACLITAXEL
     Indication: GASTRIC CANCER RECURRENT
     Dosage: 60 MG/M2, OTHER
     Route: 041
     Dates: start: 20200401, end: 202012
  2. CYRAMZA [Suspect]
     Active Substance: RAMUCIRUMAB
     Indication: GASTRIC CANCER RECURRENT
     Dosage: 8 MG/KG, CYCLICAL
     Route: 041
     Dates: start: 20200401, end: 20200826

REACTIONS (4)
  - Malignant neoplasm progression [Unknown]
  - Peritonitis [Recovered/Resolved]
  - Neutrophil count decreased [Unknown]
  - Hydronephrosis [Unknown]

NARRATIVE: CASE EVENT DATE: 202008
